FAERS Safety Report 19948390 (Version 4)
Quarter: 2022Q1

REPORT INFORMATION
  Report Type: Report from Study
  Country: FR (occurrence: FR)
  Receive Date: 20211012
  Receipt Date: 20220223
  Transmission Date: 20220423
  Serious: Yes (Hospitalization, Other)
  Sender: FDA-Public Use
  Company Number: FR-BRISTOL-MYERS SQUIBB COMPANY-BMS-2021-101628

PATIENT
  Age: 45 Year
  Sex: Male
  Weight: 39 kg

DRUGS (6)
  1. NIVOLUMAB [Suspect]
     Active Substance: NIVOLUMAB
     Indication: Squamous cell carcinoma
     Dosage: DAY 1 OF THE CYCLE 1
     Route: 065
     Dates: start: 20210726
  2. NIVOLUMAB [Suspect]
     Active Substance: NIVOLUMAB
     Dosage: DAY 1 OF THE CYCLE 2
     Route: 065
     Dates: start: 20210815
  3. CISPLATIN [Suspect]
     Active Substance: CISPLATIN
     Indication: Squamous cell carcinoma
     Dosage: DAY 1 OF THE CYCLE 1
     Route: 065
     Dates: start: 20210726
  4. CISPLATIN [Suspect]
     Active Substance: CISPLATIN
     Dosage: DAY 1 OF THE CYCLE 2
     Route: 065
     Dates: start: 20210815
  5. PRIMPERAN [Concomitant]
     Active Substance: METOCLOPRAMIDE HYDROCHLORIDE
     Indication: Nausea
     Dosage: UNK, PRN
     Route: 065
  6. TRAMADOL HYDROCHLORIDE [Concomitant]
     Active Substance: TRAMADOL HYDROCHLORIDE
     Indication: Product used for unknown indication
     Dosage: UNK, PRN
     Route: 065

REACTIONS (5)
  - Acute kidney injury [Recovered/Resolved]
  - Pneumonia pneumococcal [Recovered/Resolved]
  - Thrombocytosis [Unknown]
  - Tubulointerstitial nephritis [Not Recovered/Not Resolved]
  - Anaemia [Unknown]

NARRATIVE: CASE EVENT DATE: 20210905
